FAERS Safety Report 5533371-3 (Version None)
Quarter: 2007Q4

REPORT INFORMATION
  Report Type: 
  Country: None (occurrence: None)
  Receive Date: 20071204
  Receipt Date: 20071123
  Transmission Date: 20080405
  Serious: No
  Sender: FDA-Public Use
  Company Number: AU-ELI_LILLY_AND_COMPANY-AU200711005427

PATIENT
  Age: 7 Year
  Sex: Male
  Weight: 28 kg

DRUGS (3)
  1. STRATTERA [Suspect]
     Indication: ATTENTION DEFICIT/HYPERACTIVITY DISORDER
     Dosage: 18 MG, DAILY (1/D)
     Route: 048
     Dates: start: 20071122, end: 20071122
  2. STRATTERA [Suspect]
     Dosage: 10 MG, DAILY (1/D)
     Route: 048
     Dates: start: 20071123, end: 20071124
  3. STRATTERA [Suspect]
     Dosage: 18 MG, DAILY (1/D), EACH EVENING.
     Route: 048
     Dates: start: 20071125

REACTIONS (6)
  - AGGRESSION [None]
  - ANOREXIA [None]
  - DIZZINESS [None]
  - FATIGUE [None]
  - PHARYNGOLARYNGEAL PAIN [None]
  - SYNCOPE [None]
